FAERS Safety Report 12009642 (Version 1)
Quarter: 2016Q1

REPORT INFORMATION
  Report Type: Spontaneous
  Country: US (occurrence: None)
  Receive Date: 20160204
  Receipt Date: 20160204
  Transmission Date: 20160526
  Serious: Yes (Life-Threatening, Disabling)
  Sender: FDA-Public Use
  Company Number: None

PATIENT
  Age: 65 Year
  Sex: Female
  Weight: 51.71 kg

DRUGS (1)
  1. RISPERDAL CONSTA [Suspect]
     Active Substance: RISPERIDONE
     Indication: SCHIZOPHRENIA
     Dates: start: 20150928, end: 20151204

REACTIONS (6)
  - Dizziness [None]
  - Impaired driving ability [None]
  - Syncope [None]
  - Gait disturbance [None]
  - Arthralgia [None]
  - Malaise [None]

NARRATIVE: CASE EVENT DATE: 20150928
